FAERS Safety Report 10641502 (Version 1)
Quarter: 2014Q4

REPORT INFORMATION
  Report Type: Spontaneous
  Country: US (occurrence: US)
  Receive Date: 20141209
  Receipt Date: 20141209
  Transmission Date: 20150529
  Serious: Yes (Other)
  Sender: FDA-Public Use
  Company Number: US-ASTRAZENECA-2014SE92582

PATIENT
  Age: 76 Year
  Sex: Female
  Weight: 92.5 kg

DRUGS (2)
  1. TYVASO [Suspect]
     Active Substance: TREPROSTINIL
     Indication: PULMONARY ARTERIAL HYPERTENSION
     Dosage: 0.6 MG/ML, 18-54 MCG FOUR TIMES DAILY
     Route: 055
     Dates: start: 20140930
  2. PRILOSEC [Suspect]
     Active Substance: OMEPRAZOLE MAGNESIUM
     Route: 048

REACTIONS (8)
  - Ear pain [Unknown]
  - Nasopharyngitis [Unknown]
  - Throat irritation [Unknown]
  - Headache [Unknown]
  - Oedema peripheral [Unknown]
  - Lower respiratory tract infection [Unknown]
  - Abdominal distension [Unknown]
  - Cough [Unknown]
